FAERS Safety Report 25684241 (Version 1)
Quarter: 2025Q3

REPORT INFORMATION
  Report Type: Spontaneous
  Country: US (occurrence: US)
  Receive Date: 20250815
  Receipt Date: 20250815
  Transmission Date: 20251021
  Serious: No
  Sender: PHARMACOSMOS A/S
  Company Number: US-NEBO-701609

PATIENT
  Age: 76 Year
  Sex: Female

DRUGS (2)
  1. MONOFERRIC [Suspect]
     Active Substance: FERRIC DERISOMALTOSE
     Indication: Iron deficiency anaemia
     Dates: start: 20250718, end: 20250718
  2. SOLU-MEDROL [Concomitant]
     Active Substance: METHYLPREDNISOLONE SODIUM SUCCINATE
     Indication: Premedication

REACTIONS (3)
  - Pruritus [Unknown]
  - Dyspnoea [Unknown]
  - Throat irritation [Unknown]

NARRATIVE: CASE EVENT DATE: 20250718
